FAERS Safety Report 9348367 (Version 1)
Quarter: 2013Q2

REPORT INFORMATION
  Report Type: Spontaneous
  Country: BR (occurrence: BR)
  Receive Date: 20130614
  Receipt Date: 20130614
  Transmission Date: 20140414
  Serious: Yes (Other)
  Sender: FDA-Public Use
  Company Number: BR-PFIZER INC-2013076285

PATIENT
  Age: 59 Year
  Sex: Female
  Weight: 67 kg

DRUGS (6)
  1. CHAMPIX [Suspect]
     Indication: SMOKING CESSATION THERAPY
     Dosage: UNK
     Route: 048
  2. CHAMPIX [Suspect]
     Dosage: 2 DF, 1X/DAY (2 TABLETS)
     Route: 048
  3. CHAMPIX [Suspect]
     Dosage: ONE TABLET A DAY
     Route: 048
  4. EFEXOR XR [Suspect]
     Dosage: 1 ^TABLET^ OF STRENGTH 75 MG DAILY
     Route: 048
     Dates: start: 20071026
  5. OLMETEC HCT [Suspect]
     Dosage: 1 TABLET OF STRENGTH [20 MG OLMESARTAN MEDOXOMIL] / [12.5 MG HIDROCHLOROTIZIDE] DAILY
     Route: 048
     Dates: start: 2008
  6. DIOVAN HCT [Concomitant]
     Dosage: 320/12.5

REACTIONS (9)
  - Diabetes mellitus [Unknown]
  - Chronic obstructive pulmonary disease [Unknown]
  - Emphysema [Unknown]
  - Hypertension [Unknown]
  - Depression [Unknown]
  - Dysstasia [Unknown]
  - Nausea [Unknown]
  - Dizziness [Unknown]
  - Fatigue [Unknown]
